FAERS Safety Report 5621079-5 (Version None)
Quarter: 2008Q1

REPORT INFORMATION
  Report Type: 
  Country: None (occurrence: None)
  Receive Date: 20080114
  Receipt Date: 20061221
  Transmission Date: 20080703
  Serious: Yes (Hospitalization)
  Sender: FDA-Public Use
  Company Number: A03200607642

PATIENT
  Age: 79 Year
  Sex: Female
  Weight: 64.85 kg

DRUGS (7)
  1. PLAVIX [Suspect]
     Indication: MYOCARDIAL INFARCTION
     Dosage: 65 MG, QD, ORAL
     Route: 048
     Dates: start: 20060101
  2. PLAVIX [Suspect]
     Indication: STENT PLACEMENT
     Dosage: 65 MG, QD, ORAL
     Route: 048
     Dates: start: 20060101
  3. TILACTASE [Concomitant]
  4. ATORVASTATIN [Concomitant]
  5. ACETYLSALICYLIC ACID SRT [Concomitant]
  6. ESTROGENS CONJUGATED [Concomitant]
  7. ALPRAZOLAM [Concomitant]

REACTIONS (3)
  - ABDOMINAL PAIN [None]
  - FATIGUE [None]
  - STENT PLACEMENT [None]
